FAERS Safety Report 6818675-6 (Version None)
Quarter: 2010Q3

REPORT INFORMATION
  Report Type: 
  Country: None (occurrence: None)
  Receive Date: 20100706
  Receipt Date: 20090110
  Transmission Date: 20110219
  Serious: No
  Sender: FDA-Public Use
  Company Number: US-PFIZER INC-2009157577

PATIENT
  Age: 4 Year
  Sex: Female
  Weight: 17.234 kg

DRUGS (1)
  1. AZITHROMYCIN [Suspect]
     Dosage: 100 MG, 1X/DAY
     Route: 048
     Dates: start: 20090108

REACTIONS (2)
  - PRURITUS [None]
  - URTICARIA [None]
